FAERS Safety Report 4528321-2 (Version None)
Quarter: 2004Q4

REPORT INFORMATION
  Report Type: 
  Country: None (occurrence: None)
  Receive Date: 20041130
  Receipt Date: 20040802
  Transmission Date: 20050328
  Serious: Yes (Disabling)
  Sender: FDA-Public Use
  Company Number: WAES 0408USA00220

PATIENT
  Age: 56 Year
  Sex: Female

DRUGS (3)
  1. ZETIA [Suspect]
     Indication: BLOOD CHOLESTEROL INCREASED
     Dosage: PO
     Route: 048
     Dates: start: 20040702, end: 20040701
  2. DIOVAN [Concomitant]
  3. SYNTHROID [Concomitant]

REACTIONS (1)
  - ARTHRALGIA [None]
